FAERS Safety Report 25608948 (Version 1)
Quarter: 2025Q3

REPORT INFORMATION
  Report Type: Spontaneous
  Country: US (occurrence: US)
  Receive Date: 20250726
  Receipt Date: 20250726
  Transmission Date: 20251021
  Serious: No
  Sender: SANOFI AVENTIS
  Company Number: US-SA-2025SA212710

PATIENT
  Age: 26 Year
  Sex: Female
  Weight: 79.09 kg

DRUGS (9)
  1. DUPIXENT [Suspect]
     Active Substance: DUPILUMAB
     Indication: Nasal polyps
     Dosage: 300 MG, QOW
     Route: 058
     Dates: end: 202507
  2. EZETIMIBE [Concomitant]
     Active Substance: EZETIMIBE
  3. ROSUVASTATIN CALCIUM [Concomitant]
     Active Substance: ROSUVASTATIN CALCIUM
  4. AZITHROMYCIN [Concomitant]
     Active Substance: AZITHROMYCIN
  5. METFORMIN HYDROCHLORIDE [Concomitant]
     Active Substance: METFORMIN HYDROCHLORIDE
  6. CICLOPIROX [Concomitant]
     Active Substance: CICLOPIROX
  7. FLUCONAZOLE [Concomitant]
     Active Substance: FLUCONAZOLE
  8. CEFDINIR [Concomitant]
     Active Substance: CEFDINIR
  9. OXYCODONE AND ACETAMINOPHEN [Concomitant]
     Active Substance: ACETAMINOPHEN\OXYCODONE HYDROCHLORIDE

REACTIONS (1)
  - Injection site urticaria [Recovered/Resolved]

NARRATIVE: CASE EVENT DATE: 20250711
